FAERS Safety Report 15051694 (Version 1)
Quarter: 2018Q2

REPORT INFORMATION
  Report Type: Spontaneous
  Country: CA (occurrence: CA)
  Receive Date: 20180622
  Receipt Date: 20180622
  Transmission Date: 20180711
  Serious: Yes (Life-Threatening, Hospitalization, Disabling)
  Sender: FDA-Public Use
  Company Number: CA-ANIPHARMA-2018-CA-000551

PATIENT
  Age: 59 Year
  Sex: Female
  Weight: 78.02 kg

DRUGS (4)
  1. ATACAND [Suspect]
     Active Substance: CANDESARTAN CILEXETIL
     Indication: BLOOD PRESSURE MANAGEMENT
     Dosage: 8 MG 1 EVERY 1DAY(S
     Route: 048
  2. SYNTHROID [Concomitant]
     Active Substance: LEVOTHYROXINE SODIUM
     Route: 065
  3. QUININE [Concomitant]
     Active Substance: QUININE
     Route: 065
  4. VITAMIN D [Concomitant]
     Active Substance: CHOLECALCIFEROL
     Route: 065

REACTIONS (9)
  - Dizziness [Recovered/Resolved with Sequelae]
  - Immune thrombocytopenic purpura [Recovered/Resolved with Sequelae]
  - Nausea [Recovered/Resolved with Sequelae]
  - Abdominal pain upper [Recovering/Resolving]
  - Impaired work ability [Recovered/Resolved with Sequelae]
  - Vomiting [Recovered/Resolved with Sequelae]
  - Platelet transfusion [Recovered/Resolved with Sequelae]
  - Chills [Recovered/Resolved with Sequelae]
  - Pyrexia [Recovered/Resolved with Sequelae]
